FAERS Safety Report 10065313 (Version 1)
Quarter: 2014Q1

REPORT INFORMATION
  Report Type: Spontaneous
  Country: US (occurrence: None)
  Receive Date: 20140328
  Receipt Date: 20140328
  Transmission Date: 20141002
  Serious: No
  Sender: FDA-Public Use
  Company Number: 1000051962

PATIENT
  Age: 47 Year
  Sex: Female

DRUGS (4)
  1. LINZESS [Suspect]
     Indication: CONSTIPATION
     Dosage: 145 MCG (145 MCG, 1 IN 1 D), ORAL
     Route: 048
     Dates: start: 201311, end: 201401
  2. LINZESS [Suspect]
     Indication: CONSTIPATION
     Dosage: 145 MCG, 1 IN 1 D
     Dates: start: 201402
  3. MIRALAX (POLYETHYLENE GLYCOL 3350) [Concomitant]
  4. VITAMIN D [Concomitant]

REACTIONS (3)
  - Palpitations [None]
  - Blood bilirubin increased [None]
  - Micturition urgency [None]
